FAERS Safety Report 8478897-8 (Version None)
Quarter: 2012Q2

REPORT INFORMATION
  Report Type: 
  Country: None (occurrence: None)
  Receive Date: 20120629
  Receipt Date: 20120627
  Transmission Date: 20120825
  Serious: Yes (Other)
  Sender: FDA-Public Use
  Company Number: DE-PFIZER INC-2012109622

PATIENT
  Age: 42 Year
  Sex: Female
  Weight: 80 kg

DRUGS (3)
  1. VENLAFAXINE HCL [Suspect]
     Indication: DEPRESSION
     Dosage: 225 MG, 2X/DAY
     Dates: start: 20120420
  2. RISPERDAL [Concomitant]
     Dosage: UNK
  3. LITHIUM [Concomitant]
     Dosage: UNK

REACTIONS (18)
  - DEPRESSION [None]
  - SLOW RESPONSE TO STIMULI [None]
  - DRUG INTOLERANCE [None]
  - DYSARTHRIA [None]
  - TOBACCO USER [None]
  - EMOTIONAL POVERTY [None]
  - MALAISE [None]
  - URINARY TRACT INFECTION BACTERIAL [None]
  - SLEEP DISORDER [None]
  - NAUSEA [None]
  - APATHY [None]
  - FEELING ABNORMAL [None]
  - ACTIVITIES OF DAILY LIVING IMPAIRED [None]
  - SOMNOLENCE [None]
  - FATIGUE [None]
  - IRRITABILITY [None]
  - ALCOHOL USE [None]
  - GAIT DISTURBANCE [None]
